FAERS Safety Report 8071686-8 (Version None)
Quarter: 2012Q1

REPORT INFORMATION
  Report Type: 
  Country: None (occurrence: None)
  Receive Date: 20120125
  Receipt Date: 20120116
  Transmission Date: 20120608
  Serious: Yes (Hospitalization, Other)
  Sender: FDA-Public Use
  Company Number: US-ASTRAZENECA-2011SE63609

PATIENT
  Age: 52 Year
  Sex: Female

DRUGS (2)
  1. SYMBICORT [Suspect]
     Dosage: TWO PUFFS A DAY
     Route: 055
  2. SYMBICORT [Suspect]
     Dosage: THREE PUFFS UNK FREQUENCY
     Route: 055

REACTIONS (8)
  - JOINT RANGE OF MOTION DECREASED [None]
  - INCORRECT DOSE ADMINISTERED [None]
  - FOOT DEFORMITY [None]
  - CHRONIC OBSTRUCTIVE PULMONARY DISEASE [None]
  - STRESS [None]
  - OSTEOARTHRITIS [None]
  - DYSPNOEA [None]
  - DRUG DOSE OMISSION [None]
